FAERS Safety Report 14610417 (Version 1)
Quarter: 2018Q1

REPORT INFORMATION
  Report Type: Spontaneous
  Country: JP (occurrence: JP)
  Receive Date: 20180307
  Receipt Date: 20180307
  Transmission Date: 20180509
  Serious: Yes (Death)
  Sender: FDA-Public Use
  Company Number: JP-LUNDBECK-DKLU2044943

PATIENT
  Age: 15 Month
  Sex: Male

DRUGS (20)
  1. MYSTAN [Suspect]
     Active Substance: CLOBAZAM
     Route: 048
     Dates: start: 20170904, end: 20170907
  2. SABRIL [Concomitant]
     Active Substance: VIGABATRIN
     Indication: PRODUCT USED FOR UNKNOWN INDICATION
     Route: 065
     Dates: start: 20170411
  3. MYSTAN [Suspect]
     Active Substance: CLOBAZAM
     Route: 048
     Dates: start: 20170731, end: 20170806
  4. MYSTAN [Suspect]
     Active Substance: CLOBAZAM
     Route: 048
     Dates: start: 20170821, end: 20170827
  5. ZONISAMIDE. [Concomitant]
     Active Substance: ZONISAMIDE
     Indication: PRODUCT USED FOR UNKNOWN INDICATION
     Route: 065
  6. TOPINA [Concomitant]
     Active Substance: TOPIRAMATE
     Indication: PRODUCT USED FOR UNKNOWN INDICATION
     Route: 065
     Dates: start: 20170828
  7. MYSTAN [Suspect]
     Active Substance: CLOBAZAM
     Indication: INFANTILE SPASMS
     Route: 048
     Dates: start: 20170724, end: 20170730
  8. ESCRE [Concomitant]
     Indication: PRODUCT USED FOR UNKNOWN INDICATION
     Route: 065
  9. CARBOCISTEINE [Concomitant]
     Active Substance: CARBOCYSTEINE
     Indication: PRODUCT USED FOR UNKNOWN INDICATION
     Route: 065
  10. E KEPPRA [Concomitant]
     Active Substance: LEVETIRACETAM
     Indication: PRODUCT USED FOR UNKNOWN INDICATION
     Route: 065
     Dates: end: 20170904
  11. ALMETA [Concomitant]
     Active Substance: ALCLOMETASONE DIPROPIONATE
     Indication: PRODUCT USED FOR UNKNOWN INDICATION
     Route: 065
  12. TRICLORYL [Concomitant]
     Active Substance: TRICLOFOS SODIUM
     Indication: PRODUCT USED FOR UNKNOWN INDICATION
     Route: 065
  13. MYSTAN [Suspect]
     Active Substance: CLOBAZAM
     Route: 048
     Dates: start: 20170807, end: 20170813
  14. MYSTAN [Suspect]
     Active Substance: CLOBAZAM
     Route: 048
     Dates: start: 20170814, end: 20170820
  15. MYSTAN [Suspect]
     Active Substance: CLOBAZAM
     Route: 048
     Dates: start: 20170828, end: 20170903
  16. MYDRIN P [Concomitant]
     Active Substance: PHENYLEPHRINE HYDROCHLORIDE\TROPICAMIDE
     Indication: PRODUCT USED FOR UNKNOWN INDICATION
     Route: 065
  17. BIOFERMIN [Concomitant]
     Active Substance: BACILLUS SUBTILIS\LACTOBACILLUS ACIDOPHILUS\STREPTOCOCCUS FAECAIS
     Indication: PRODUCT USED FOR UNKNOWN INDICATION
     Route: 065
  18. HIRUDOID [Concomitant]
     Active Substance: GLYCOSAMINOGLYCANS
     Indication: PRODUCT USED FOR UNKNOWN INDICATION
     Route: 065
  19. ASCORBIC ACID. [Concomitant]
     Active Substance: ASCORBIC ACID
     Indication: PRODUCT USED FOR UNKNOWN INDICATION
     Route: 065
  20. TELEMINSOFT [Concomitant]
     Active Substance: BISACODYL
     Indication: PRODUCT USED FOR UNKNOWN INDICATION
     Route: 065

REACTIONS (2)
  - Cardio-respiratory arrest [Fatal]
  - Increased bronchial secretion [Unknown]

NARRATIVE: CASE EVENT DATE: 20170828
